FAERS Safety Report 7669530-3 (Version None)
Quarter: 2011Q3

REPORT INFORMATION
  Report Type: 
  Country: None (occurrence: None)
  Receive Date: 20110808
  Receipt Date: 20110802
  Transmission Date: 20111222
  Serious: Yes (Other)
  Sender: FDA-Public Use
  Company Number: FR-MERCK-1108FRA00019

PATIENT
  Age: 75 Year
  Sex: Male

DRUGS (8)
  1. ESOMEPRAZOLE MAGNESIUM [Concomitant]
     Route: 065
  2. TAMSULOSIN HYDROCHLORIDE [Concomitant]
     Route: 065
  3. MANIDIPINE HYDROCHLORIDE [Concomitant]
     Route: 065
  4. FLUINDIONE [Concomitant]
     Route: 065
  5. JANUVIA [Suspect]
     Indication: DIABETES MELLITUS
     Route: 048
     Dates: start: 20110624, end: 20110629
  6. REPAGLINIDE [Concomitant]
     Route: 065
  7. INSULIN DETEMIR [Suspect]
     Indication: DIABETES MELLITUS
     Route: 058
     Dates: start: 20110624, end: 20110629
  8. URAPIDIL [Concomitant]
     Route: 065

REACTIONS (2)
  - PRURITUS [None]
  - ECZEMA [None]
